FAERS Safety Report 9852371 (Version 1)
Quarter: 2014Q1

REPORT INFORMATION
  Report Type: Spontaneous
  Country: US (occurrence: None)
  Receive Date: 20140127
  Receipt Date: 20140127
  Transmission Date: 20141002
  Serious: Yes (Death)
  Sender: FDA-Public Use
  Company Number: 2014AP000334

PATIENT
  Age: 42 Year
  Sex: Male

DRUGS (8)
  1. QUETIAPINE FUMARATE [Suspect]
  2. CITALOPRAM HYDROBROMIDE [Suspect]
  3. MIRTAZAPINE [Suspect]
  4. CARBON MONOXIDE [Suspect]
  5. COCAINE [Suspect]
  6. PHENOBARBITAL [Suspect]
  7. PHENYTOIN [Suspect]
  8. ETHANOL [Suspect]

REACTIONS (1)
  - Environmental exposure [None]
